FAERS Safety Report 13629594 (Version 1)
Quarter: 2017Q2

REPORT INFORMATION
  Report Type: Report from Study
  Country: None (occurrence: US)
  Receive Date: 20170608
  Receipt Date: 20170608
  Transmission Date: 20170830
  Serious: Yes (Hospitalization, Other)
  Sender: FDA-Public Use
  Company Number: US-ABBVIE-17K-163-1999940-00

PATIENT
  Age: 68 Year
  Sex: Female
  Weight: 85.35 kg

DRUGS (10)
  1. HUMIRA [Suspect]
     Active Substance: ADALIMUMAB
     Indication: PSORIATIC ARTHROPATHY
     Route: 058
     Dates: start: 2006, end: 201705
  2. MECLIZINE [Concomitant]
     Active Substance: MECLIZINE HYDROCHLORIDE
     Indication: VERTIGO
  3. ASCORBIC ACID. [Concomitant]
     Active Substance: ASCORBIC ACID
     Indication: VITAMIN SUPPLEMENTATION
  4. NASACORT [Concomitant]
     Active Substance: TRIAMCINOLONE ACETONIDE
     Indication: MUCOSAL DRYNESS
  5. BABY ASPIRIN [Concomitant]
     Active Substance: ASPIRIN
     Indication: CARDIAC DISORDER
  6. PROPANOLOL [Concomitant]
     Active Substance: PROPRANOLOL HYDROCHLORIDE
     Indication: HYPERTENSION
  7. LOSARTAN. [Concomitant]
     Active Substance: LOSARTAN
     Indication: BLOOD PRESSURE MEASUREMENT
  8. VITAMIN B12 [Concomitant]
     Active Substance: CYANOCOBALAMIN
     Indication: VITAMIN SUPPLEMENTATION
  9. LIPITOR [Concomitant]
     Active Substance: ATORVASTATIN CALCIUM
     Indication: BLOOD CHOLESTEROL ABNORMAL
  10. AZELASTINE [Concomitant]
     Active Substance: AZELASTINE
     Indication: SINUSITIS

REACTIONS (19)
  - Cataract operation complication [Not Recovered/Not Resolved]
  - Nasal congestion [Not Recovered/Not Resolved]
  - Dizziness [Recovering/Resolving]
  - Wrist fracture [Recovering/Resolving]
  - Cerebrovascular accident [Recovered/Resolved]
  - Calcinosis [Recovering/Resolving]
  - Sinus disorder [Not Recovered/Not Resolved]
  - Cerebrovascular accident [Recovering/Resolving]
  - Procedural pain [Not Recovered/Not Resolved]
  - Essential tremor [Not Recovered/Not Resolved]
  - Neuropathy peripheral [Recovering/Resolving]
  - Fall [Recovering/Resolving]
  - Joint range of motion decreased [Recovering/Resolving]
  - Post procedural complication [Recovering/Resolving]
  - Oxygen saturation decreased [Recovered/Resolved]
  - Cataract [Not Recovered/Not Resolved]
  - Fall [Recovering/Resolving]
  - Headache [Not Recovered/Not Resolved]
  - Eye irritation [Not Recovered/Not Resolved]

NARRATIVE: CASE EVENT DATE: 2006
